FAERS Safety Report 23351449 (Version 1)
Quarter: 2023Q4

REPORT INFORMATION
  Report Type: Report from Study
  Country: US (occurrence: US)
  Receive Date: 20231229
  Receipt Date: 20231229
  Transmission Date: 20240110
  Serious: Yes (Other)
  Sender: FDA-Public Use
  Company Number: US-BAYER-2023A164605

PATIENT
  Age: 79 Year
  Sex: Male

DRUGS (4)
  1. STIVARGA [Suspect]
     Active Substance: REGORAFENIB
     Indication: Colorectal cancer
     Dosage: 40 MG, QD (FOR 21 DAYS EVERY 28 DAY CYCLE)
     Route: 048
     Dates: start: 20231113
  2. STIVARGA [Suspect]
     Active Substance: REGORAFENIB
     Indication: Colorectal cancer
     Dosage: 40 MG, QD (FOR 21 DAYS EVERY 28 DAY CYCLE)
     Route: 048
  3. STIVARGA [Suspect]
     Active Substance: REGORAFENIB
     Indication: Colorectal cancer
     Dosage: 40 MG, QD (FOR 21 DAYS EVERY 28 DAY CYCLE)
     Route: 048
  4. LONSURF [Concomitant]
     Active Substance: TIPIRACIL HYDROCHLORIDE\TRIFLURIDINE
     Indication: Colorectal cancer
     Dosage: 20MG/8.19MG (1 TABLET EVERY MORNING AND 2 TABLETS (40 MG) EVERY EVENING)
     Route: 048
     Dates: start: 20220813

REACTIONS (14)
  - Hypertension [Recovering/Resolving]
  - Blood pressure increased [Unknown]
  - Neuropathy peripheral [Unknown]
  - Constipation [Unknown]
  - Abdominal pain upper [Recovered/Resolved]
  - Dysphonia [Unknown]
  - Aphonia [Not Recovered/Not Resolved]
  - Stomatitis [Not Recovered/Not Resolved]
  - Loss of personal independence in daily activities [None]
  - Abdominal discomfort [Not Recovered/Not Resolved]
  - Off label use [None]
  - Pain [Recovering/Resolving]
  - Mobility decreased [Recovering/Resolving]
  - Stomatitis [Unknown]

NARRATIVE: CASE EVENT DATE: 20231101
